FAERS Safety Report 13135362 (Version 3)
Quarter: 2018Q2

REPORT INFORMATION
  Report Type: Spontaneous
  Country: US (occurrence: US)
  Receive Date: 20170120
  Receipt Date: 20180504
  Transmission Date: 20180711
  Serious: Yes (Other)
  Sender: FDA-Public Use
  Company Number: US-BIOMARINAP-US-2017-112490

PATIENT
  Sex: Male

DRUGS (3)
  1. ALDURAZYME [Suspect]
     Active Substance: LARONIDASE
     Dosage: 20.3 MG, QW
     Route: 041
     Dates: start: 20120703, end: 2017
  2. ALDURAZYME [Suspect]
     Active Substance: LARONIDASE
     Dosage: 20.3 MG, QW
     Route: 041
     Dates: end: 20180412
  3. ALDURAZYME [Suspect]
     Active Substance: LARONIDASE
     Indication: MUCOPOLYSACCHARIDOSIS I
     Dosage: 31.9 MG, QW
     Route: 041
     Dates: start: 20030721

REACTIONS (3)
  - Infusion related reaction [Unknown]
  - Ill-defined disorder [Unknown]
  - Respiratory tract infection [Not Recovered/Not Resolved]
